FAERS Safety Report 12571664 (Version 1)
Quarter: 2016Q3

REPORT INFORMATION
  Report Type: Spontaneous
  Country: BF (occurrence: SN)
  Receive Date: 20160719
  Receipt Date: 20160719
  Transmission Date: 20161109
  Serious: Yes (Other)
  Sender: FDA-Public Use
  Company Number: BF-ACTAVIS-2016-15390

PATIENT
  Age: 22 Year
  Sex: Female

DRUGS (2)
  1. TAXOTERE [Suspect]
     Active Substance: DOCETAXEL
     Indication: INVASIVE DUCTAL BREAST CARCINOMA
     Dosage: UNKNOWN
     Route: 065
  2. DOXORUBICIN (UNKNOWN) [Suspect]
     Active Substance: DOXORUBICIN
     Indication: INVASIVE DUCTAL BREAST CARCINOMA
     Dosage: UNKNOWN
     Route: 065

REACTIONS (5)
  - Vomiting [Unknown]
  - Exposure during pregnancy [Recovered/Resolved]
  - Alopecia [Unknown]
  - Mucosal inflammation [Unknown]
  - Nausea [Unknown]
